APPROVED DRUG PRODUCT: CEFEPIME HYDROCHLORIDE
Active Ingredient: CEFEPIME HYDROCHLORIDE
Strength: EQ 2GM BASE/VIAL
Dosage Form/Route: INJECTABLE;INJECTION
Application: A065369 | Product #003
Applicant: HOSPIRA INC
Approved: Jun 18, 2007 | RLD: No | RS: No | Type: DISCN